FAERS Safety Report 9460489 (Version 1)
Quarter: 2013Q3

REPORT INFORMATION
  Report Type: Spontaneous
  Country: DK (occurrence: AU)
  Receive Date: 20130815
  Receipt Date: 20130815
  Transmission Date: 20140515
  Serious: Yes (Hospitalization)
  Sender: FDA-Public Use
  Company Number: AU-FRI-1000047851

PATIENT
  Sex: Female

DRUGS (3)
  1. ESCITALOPRAM [Suspect]
     Dosage: 20 MG
     Route: 048
     Dates: start: 20120215
  2. ESCITALOPRAM [Suspect]
     Dosage: 200 MG
     Dates: start: 20120215
  3. SEROQUEL [Suspect]

REACTIONS (2)
  - Pregnancy [Recovered/Resolved]
  - Premature delivery [Unknown]
